FAERS Safety Report 4389383-9 (Version None)
Quarter: 2004Q3

REPORT INFORMATION
  Report Type: 
  Country: None (occurrence: None)
  Receive Date: 20040701
  Receipt Date: 20040701
  Transmission Date: 20050211
  Serious: No
  Sender: FDA-Public Use
  Company Number: None

PATIENT
  Sex: Male
  Weight: 84 kg

DRUGS (1)
  1. AMIODARONE HCL [Suspect]
     Indication: ARRHYTHMIA
     Dosage: 400 MG BID ORAL
     Route: 048
     Dates: start: 20040508, end: 20040527

REACTIONS (2)
  - AGEUSIA [None]
  - BLOOD THYROID STIMULATING HORMONE INCREASED [None]
